FAERS Safety Report 6067728-1 (Version None)
Quarter: 2009Q1

REPORT INFORMATION
  Report Type: 
  Country: None (occurrence: None)
  Receive Date: 20090205
  Receipt Date: 20090129
  Transmission Date: 20090719
  Serious: Yes (Other)
  Sender: FDA-Public Use
  Company Number: US-AMGEN-KDL326860

PATIENT
  Sex: Male
  Weight: 87.2 kg

DRUGS (5)
  1. EPOGEN [Suspect]
     Indication: DIALYSIS
     Route: 058
     Dates: start: 20080514
  2. REVLIMID [Concomitant]
     Dates: start: 20080819
  3. DEXAMETHASONE TAB [Concomitant]
  4. BENADRYL [Concomitant]
     Route: 048
  5. TYLENOL [Concomitant]
     Route: 048

REACTIONS (3)
  - NORMOCHROMIC NORMOCYTIC ANAEMIA [None]
  - THERAPEUTIC RESPONSE DECREASED [None]
  - THROMBOCYTOPENIA [None]
